FAERS Safety Report 9801372 (Version 1)
Quarter: 2014Q1

REPORT INFORMATION
  Report Type: Spontaneous
  Country: US (occurrence: US)
  Receive Date: 20140107
  Receipt Date: 20140107
  Transmission Date: 20141002
  Serious: No
  Sender: FDA-Public Use
  Company Number: US-GLAXOSMITHKLINE-A1050809A

PATIENT
  Age: 39 Year
  Sex: Female

DRUGS (13)
  1. BENLYSTA [Suspect]
     Indication: SYSTEMIC LUPUS ERYTHEMATOSUS
     Dosage: 600MG MONTHLY
     Route: 042
     Dates: start: 20130422
  2. PLAQUENIL [Concomitant]
  3. IMURAN [Concomitant]
  4. METHADONE [Concomitant]
  5. OXYCODONE [Concomitant]
  6. COUMADIN [Concomitant]
  7. LAMOTRIGINE [Concomitant]
  8. LISINOPRIL [Concomitant]
  9. RANITIDINE [Concomitant]
  10. PHENERGAN [Concomitant]
  11. BACLOFEN [Concomitant]
  12. ZEMPLAR [Concomitant]
  13. PRO-AIR [Concomitant]

REACTIONS (3)
  - Extravasation [Not Recovered/Not Resolved]
  - Breast tenderness [Unknown]
  - Oedema [Unknown]
